FAERS Safety Report 7156292-1 (Version None)
Quarter: 2010Q4

REPORT INFORMATION
  Report Type: 
  Country: None (occurrence: None)
  Receive Date: 20101123
  Receipt Date: 20100804
  Transmission Date: 20110411
  Serious: Yes (Hospitalization)
  Sender: FDA-Public Use
  Company Number: 011277

PATIENT
  Sex: Male
  Weight: 122.5 kg

DRUGS (13)
  1. CIMZIA [Suspect]
     Indication: RHEUMATOID ARTHRITIS
     Dosage: (200 MG 1X/2 WEEKS SUBCUTANEOUS) (200 MG 1X/2 WEEKS SUBCUTANEOUS)
     Route: 058
     Dates: start: 20090101, end: 20100601
  2. CIMZIA [Suspect]
     Indication: RHEUMATOID ARTHRITIS
     Dosage: (200 MG 1X/2 WEEKS SUBCUTANEOUS) (200 MG 1X/2 WEEKS SUBCUTANEOUS)
     Route: 058
     Dates: start: 20100726
  3. PENTASA [Concomitant]
  4. PREDNISONE [Concomitant]
  5. ALLOPURIONOL [Concomitant]
  6. ATENOLOL [Concomitant]
  7. FENOFIBRATE [Concomitant]
  8. POTASSIUM CITRATE [Concomitant]
  9. LYRICA [Concomitant]
  10. CODEINE /00012602/ [Concomitant]
  11. LANSOPRAZOLE [Concomitant]
  12. ACETYLSALICYLIC ACID [Concomitant]
  13. VITAMIN B12 [Concomitant]

REACTIONS (5)
  - CROHN'S DISEASE [None]
  - DECREASED APPETITE [None]
  - RASH [None]
  - RENAL DISORDER [None]
  - VIRAL INFECTION [None]
